FAERS Safety Report 11880910 (Version 1)
Quarter: 2015Q4

REPORT INFORMATION
  Report Type: Spontaneous
  Country: US (occurrence: US)
  Receive Date: 20151230
  Receipt Date: 20151230
  Transmission Date: 20160305
  Serious: Yes (Other)
  Sender: FDA-Public Use
  Company Number: ALCN2015US008014

PATIENT
  Age: 18 Year
  Sex: Female

DRUGS (2)
  1. PREDNISOLONE ACETATE. [Suspect]
     Active Substance: PREDNISOLONE ACETATE
     Indication: POSTOPERATIVE CARE
     Dosage: UNK UNK, QID
     Route: 047
  2. FLAREX [Suspect]
     Active Substance: FLUOROMETHOLONE ACETATE
     Indication: POSTOPERATIVE CARE
     Dosage: UNK UNK, QID X1.5 MONTHS
     Route: 047

REACTIONS (6)
  - Halo vision [Unknown]
  - Headache [Unknown]
  - Vision blurred [Unknown]
  - Glaucoma [Recovered/Resolved]
  - Photopsia [Unknown]
  - Dizziness [Unknown]
